FAERS Safety Report 6442081-X (Version None)
Quarter: 2009Q4

REPORT INFORMATION
  Report Type: 
  Country: None (occurrence: None)
  Receive Date: 20091116
  Receipt Date: 20091102
  Transmission Date: 20100525
  Serious: Yes (Hospitalization)
  Sender: FDA-Public Use
  Company Number: PHHY2009DE48037

PATIENT
  Age: 39 Year
  Sex: Female

DRUGS (9)
  1. LEPONEX [Suspect]
     Dosage: 150 MG, UNK
     Dates: start: 20070527, end: 20070627
  2. IMPROMEN [Interacting]
     Dosage: UNK
     Dates: start: 20070527, end: 20070627
  3. FUROSEMIDE [Interacting]
     Dosage: UNK
     Dates: start: 20070527, end: 20070627
  4. ERGENYL CHRONO [Interacting]
     Dosage: UNK
     Dates: end: 20070528
  5. ERGENYL CHRONO [Interacting]
     Dosage: UNK
     Dates: start: 20070529, end: 20070627
  6. PANTOZOL [Concomitant]
     Dosage: UNK
     Dates: start: 20070527, end: 20070627
  7. GASTROZEPIN [Concomitant]
     Dosage: UNK
     Dates: start: 20070527, end: 20070627
  8. FOLSAN [Concomitant]
     Dosage: UNK
     Dates: start: 20070527, end: 20070627
  9. ABILIFY [Concomitant]
     Dosage: UNK
     Dates: start: 20070528, end: 20070531

REACTIONS (3)
  - BLOOD SODIUM DECREASED [None]
  - ELECTROCARDIOGRAM QT PROLONGED [None]
  - HYPOKALAEMIA [None]
